FAERS Safety Report 17918045 (Version 3)
Quarter: 2020Q3

REPORT INFORMATION
  Report Type: Report from Study
  Country: US (occurrence: US)
  Receive Date: 20200619
  Receipt Date: 20200721
  Transmission Date: 20201103
  Serious: No
  Sender: FDA-Public Use
  Company Number: NVSC2020US172149

PATIENT
  Sex: Male

DRUGS (1)
  1. ENTRESTO [Suspect]
     Active Substance: SACUBITRIL\VALSARTAN
     Indication: CARDIAC FAILURE CHRONIC
     Dosage: UNK
     Route: 065
     Dates: start: 202006

REACTIONS (5)
  - Weight decreased [Unknown]
  - Dizziness [Unknown]
  - Hypotension [Unknown]
  - Dyspnoea [Not Recovered/Not Resolved]
  - Fluid retention [Unknown]
